FAERS Safety Report 4650795-7 (Version None)
Quarter: 2005Q2

REPORT INFORMATION
  Report Type: 
  Country: None (occurrence: None)
  Receive Date: 20050503
  Receipt Date: 20030725
  Transmission Date: 20051028
  Serious: Yes (Disabling)
  Sender: FDA-Public Use
  Company Number: CH-GLAXOSMITHKLINE-B0305947A

PATIENT
  Age: 44 Year
  Sex: Male

DRUGS (5)
  1. LITHIUM CARBONATE [Suspect]
     Dates: start: 20000821
  2. CLOZAPINE [Suspect]
     Dates: start: 20010927
  3. VALPROATE SODIUM [Suspect]
     Dates: start: 19971211
  4. LORAZEPAM [Suspect]
     Dates: start: 20030123
  5. LAXATIVE [Concomitant]

REACTIONS (7)
  - ARRHYTHMIA [None]
  - DEPRESSED LEVEL OF CONSCIOUSNESS [None]
  - ELECTROENCEPHALOGRAM ABNORMAL [None]
  - HYPERVENTILATION [None]
  - OVERDOSE [None]
  - SOMNOLENCE [None]
  - TRANSIENT ISCHAEMIC ATTACK [None]
